FAERS Safety Report 10590291 (Version 2)
Quarter: 2014Q4

REPORT INFORMATION
  Report Type: Spontaneous
  Country: DK (occurrence: DK)
  Receive Date: 20141118
  Receipt Date: 20141204
  Transmission Date: 20150529
  Serious: Yes (Hospitalization, Other)
  Sender: FDA-Public Use
  Company Number: DK-B.I. PHARMACEUTICALS,INC./RIDGEFIELD-2014-BI-54997GD

PATIENT
  Age: 77 Year
  Sex: Male

DRUGS (2)
  1. DABIGATRAN [Suspect]
     Active Substance: DABIGATRAN
     Indication: ATRIAL FIBRILLATION
     Route: 065
  2. DABIGATRAN [Suspect]
     Active Substance: DABIGATRAN
     Dosage: 220 MG
     Route: 065

REACTIONS (18)
  - Urinary retention [Unknown]
  - Oxygen saturation decreased [Recovered/Resolved]
  - Acute kidney injury [Recovered/Resolved]
  - Device occlusion [Unknown]
  - Sepsis [Recovered/Resolved]
  - Urine output decreased [Recovered/Resolved]
  - Coagulopathy [Recovered/Resolved]
  - Cardiac failure [Unknown]
  - Urosepsis [Unknown]
  - Calculus bladder [Unknown]
  - Fluid overload [Unknown]
  - Toxicity to various agents [Recovered/Resolved]
  - Confusional state [Unknown]
  - Septic shock [Unknown]
  - Haematuria [Unknown]
  - Oesophageal haemorrhage [Unknown]
  - Hypertension [Unknown]
  - Disseminated intravascular coagulation [Recovered/Resolved]
